FAERS Safety Report 7044534-2 (Version None)
Quarter: 2010Q4

REPORT INFORMATION
  Report Type: 
  Country: None (occurrence: None)
  Receive Date: 20101014
  Receipt Date: 20100929
  Transmission Date: 20110411
  Serious: Yes (Other)
  Sender: FDA-Public Use
  Company Number: PHFR2007GB02741

PATIENT
  Sex: Male

DRUGS (2)
  1. CLOZARIL [Suspect]
     Indication: SCHIZOPHRENIA
     Dosage: 300MG DAILY
     Route: 048
     Dates: start: 20070825
  2. CLOZARIL [Suspect]
     Dosage: 800 MG OVER SIX MONTHS (MAR TO OCT 2008)
     Route: 048
     Dates: start: 20080301

REACTIONS (4)
  - ALANINE AMINOTRANSFERASE INCREASED [None]
  - HEPATITIS C VIRUS TEST POSITIVE [None]
  - PALPITATIONS [None]
  - TACHYCARDIA [None]
